FAERS Safety Report 5822994-X (Version None)
Quarter: 2008Q3

REPORT INFORMATION
  Report Type: 
  Country: None (occurrence: None)
  Receive Date: 20080725
  Receipt Date: 20080723
  Transmission Date: 20090109
  Serious: Yes (Other)
  Sender: FDA-Public Use
  Company Number: B0514234A

PATIENT

DRUGS (2)
  1. PAXIL [Suspect]
     Indication: DRUG USE FOR UNKNOWN INDICATION
     Route: 048
  2. ROHYPNOL [Concomitant]

REACTIONS (5)
  - EUPHORIC MOOD [None]
  - EYE DISORDER [None]
  - HYPERHIDROSIS [None]
  - IRRITABILITY [None]
  - SEROTONIN SYNDROME [None]
